FAERS Safety Report 24664001 (Version 1)
Quarter: 2024Q4

REPORT INFORMATION
  Report Type: Spontaneous
  Country: US (occurrence: US)
  Receive Date: 20241126
  Receipt Date: 20241126
  Transmission Date: 20250114
  Serious: No
  Sender: Kenvue
  Company Number: US-KENVUE-20241031216

PATIENT
  Age: 66 Year
  Sex: Male

DRUGS (12)
  1. IMODIUM [Suspect]
     Active Substance: LOPERAMIDE HYDROCHLORIDE
     Indication: Abdominal distension
     Dosage: UNK
     Route: 065
     Dates: start: 2024
  2. IMODIUM [Suspect]
     Active Substance: LOPERAMIDE HYDROCHLORIDE
     Indication: Flatulence
  3. TYLENOL [Concomitant]
     Active Substance: ACETAMINOPHEN
     Indication: Proctalgia
     Dosage: UNK
     Route: 065
     Dates: start: 2024
  4. UCERIS [Concomitant]
     Active Substance: BUDESONIDE
     Indication: Abdominal distension
     Dosage: UNK
     Route: 065
     Dates: start: 2024
  5. UCERIS [Concomitant]
     Active Substance: BUDESONIDE
     Indication: Flatulence
  6. ENTYVIO [Concomitant]
     Active Substance: VEDOLIZUMAB
     Indication: Anorectal discomfort
     Dosage: UNK
     Route: 065
     Dates: start: 2024
  7. ENTYVIO [Concomitant]
     Active Substance: VEDOLIZUMAB
     Indication: Proctalgia
  8. ENTYVIO [Concomitant]
     Active Substance: VEDOLIZUMAB
     Indication: Abdominal distension
  9. ENTYVIO [Concomitant]
     Active Substance: VEDOLIZUMAB
     Indication: Flatulence
  10. INFLECTRA [Concomitant]
     Active Substance: INFLIXIMAB-DYYB
     Indication: Colitis ulcerative
     Dosage: 10MG/KG (W 0, 2, 6 WEEKS THEN EVERY 8 WEEKS)
     Route: 042
     Dates: start: 20240708
  11. INFLECTRA [Concomitant]
     Active Substance: INFLIXIMAB-DYYB
     Dosage: 10 MILLIGRAM/KILOGRAM
     Route: 042
     Dates: start: 20240821
  12. INFLECTRA [Concomitant]
     Active Substance: INFLIXIMAB-DYYB
     Dosage: 10MG/KG (4 WEEKS AFTER INDUCTION WEEKS 6)
     Route: 042
     Dates: start: 20240920

REACTIONS (1)
  - Drug ineffective [Unknown]

NARRATIVE: CASE EVENT DATE: 20240101
